FAERS Safety Report 19631436 (Version 1)
Quarter: 2021Q3

REPORT INFORMATION
  Report Type: Spontaneous
  Country: IN (occurrence: IN)
  Receive Date: 20210729
  Receipt Date: 20210729
  Transmission Date: 20211014
  Serious: Yes (Other)
  Sender: FDA-Public Use
  Company Number: IN-ELI_LILLY_AND_COMPANY-IN202107009737

PATIENT
  Age: 57 Year
  Sex: Male
  Weight: 80 kg

DRUGS (2)
  1. INSULIN HUMAN [Suspect]
     Active Substance: INSULIN HUMAN
     Indication: TYPE 2 DIABETES MELLITUS
     Dosage: 40 INTERNATIONAL UNIT, IN THE MORNING
     Route: 065
  2. INSULIN HUMAN [Suspect]
     Active Substance: INSULIN HUMAN
     Dosage: 30 INTERNATIONAL UNIT, AT BEDTIME
     Route: 065

REACTIONS (8)
  - Injection site scar [Unknown]
  - Blood urine present [Unknown]
  - Protein urine present [Unknown]
  - Amyloidoma [Unknown]
  - Red blood cell sedimentation rate increased [Unknown]
  - Blood cholesterol increased [Unknown]
  - Blood triglycerides increased [Unknown]
  - Glucose urine present [Unknown]
